FAERS Safety Report 22033743 (Version 1)
Quarter: 2023Q1

REPORT INFORMATION
  Report Type: Spontaneous
  Country: FR (occurrence: FR)
  Receive Date: 20230224
  Receipt Date: 20230224
  Transmission Date: 20230418
  Serious: Yes (Life-Threatening)
  Sender: FDA-Public Use
  Company Number: None

PATIENT
  Age: 74 Year
  Sex: Female
  Weight: 68.2 kg

DRUGS (11)
  1. MITOMYCIN [Suspect]
     Active Substance: MITOMYCIN
     Indication: Mucinous adenocarcinoma of appendix
     Dates: start: 20230110, end: 20230110
  2. FLUOXETINE HYDROCHLORIDE [Concomitant]
     Active Substance: FLUOXETINE HYDROCHLORIDE
  3. MORPHINE HYDROCHLORIDE [Concomitant]
     Active Substance: MORPHINE HYDROCHLORIDE
  4. ONDANSETRON [Concomitant]
     Active Substance: ONDANSETRON
  5. ALBUTEROL [Concomitant]
     Active Substance: ALBUTEROL
     Dosage: STRENGTH:5MG/2.5ML, SOLUTION FOR INHALATION BY NEBULIZER IN A SINGLE-DOSE CONTAINER
  6. IPRATROPIUM [Concomitant]
     Active Substance: IPRATROPIUM
     Dosage: STRENGTH:0.5 MG/2 ML, SOLUTION FOR INHALATION BY NEBULISER IN A SINGLE-DOSE CONTAINER
  7. ERYTHROMYCIN [Concomitant]
     Active Substance: ERYTHROMYCIN
  8. ACETAMINOPHEN [Concomitant]
     Active Substance: ACETAMINOPHEN
  9. KAYEXALATE [Concomitant]
     Active Substance: SODIUM POLYSTYRENE SULFONATE
  10. ZOPICLONE [Concomitant]
     Active Substance: ZOPICLONE
     Dosage: STRENGTH:7.5MG
  11. NEFOPAM [Concomitant]
     Active Substance: NEFOPAM

REACTIONS (1)
  - Interstitial lung disease [Not Recovered/Not Resolved]

NARRATIVE: CASE EVENT DATE: 20230115
